FAERS Safety Report 8578695-0 (Version None)
Quarter: 2012Q3

REPORT INFORMATION
  Report Type: 
  Country: None (occurrence: None)
  Receive Date: 20120801
  Receipt Date: 20120801
  Transmission Date: 20120928
  Serious: Yes (Hospitalization)
  Sender: FDA-Public Use
  Company Number: None

PATIENT
  Age: 69 Year
  Sex: Male
  Weight: 107.8 kg

DRUGS (1)
  1. NITROFURANTOIN [Suspect]
     Indication: URINARY TRACT INFECTION
     Dosage: 100MG QID PO
     Route: 048
     Dates: start: 20120716, end: 20120726

REACTIONS (4)
  - RASH [None]
  - ASTHENIA [None]
  - PYREXIA [None]
  - MALAISE [None]
